FAERS Safety Report 24165928 (Version 1)
Quarter: 2024Q3

REPORT INFORMATION
  Report Type: Spontaneous
  Country: TR (occurrence: TR)
  Receive Date: 20240802
  Receipt Date: 20240802
  Transmission Date: 20241017
  Serious: Yes (Hospitalization)
  Sender: NOVITIUM PHARMA
  Company Number: TR-NOVITIUMPHARMA-2024TRNVP01454

PATIENT
  Age: 34 Year
  Sex: Male

DRUGS (8)
  1. LACOSAMIDE [Suspect]
     Active Substance: LACOSAMIDE
     Indication: Seizure
     Dosage: MAXIMUM DOSES
  2. CARBAMAZEPINE [Suspect]
     Active Substance: CARBAMAZEPINE
     Indication: Seizure
  3. VALPROIC ACID [Concomitant]
     Active Substance: VALPROIC ACID
     Indication: Seizure
     Dosage: MAXIMUM DOSES
  4. VALPROIC ACID [Concomitant]
     Active Substance: VALPROIC ACID
     Dosage: DOSE TAPERED
  5. TOPIRAMATE [Concomitant]
     Active Substance: TOPIRAMATE
     Indication: Seizure
  6. LEVETIRACETAM [Concomitant]
     Active Substance: LEVETIRACETAM
     Indication: Seizure
     Dosage: MAXIMUM DOSES
  7. ZONISAMIDE [Concomitant]
     Active Substance: ZONISAMIDE
     Indication: Seizure
     Dosage: MAXIMUM DOSES
  8. ZONISAMIDE [Concomitant]
     Active Substance: ZONISAMIDE
     Dosage: DOSE WAS GRADUALLY REDUCED

REACTIONS (2)
  - Drug ineffective [Unknown]
  - Drug resistance [Unknown]
